FAERS Safety Report 9841215 (Version 3)
Quarter: 2014Q4

REPORT INFORMATION
  Report Type: Spontaneous
  Country: BR (occurrence: BR)
  Receive Date: 20140124
  Receipt Date: 20141016
  Transmission Date: 20150529
  Serious: Yes (Hospitalization)
  Sender: FDA-Public Use
  Company Number: BR-NOVOPROD-398409

PATIENT
  Sex: Female
  Weight: 65 kg

DRUGS (5)
  1. ERANZ [Concomitant]
     Active Substance: DONEPEZIL HYDROCHLORIDE
     Indication: ANTIDEPRESSANT THERAPY
     Dosage: 1 TAB, QD (1 TAB AT NIGHT)
     Route: 048
     Dates: start: 2010
  2. GLIFAGE [Concomitant]
     Active Substance: METFORMIN HYDROCHLORIDE
     Indication: DIABETES MELLITUS
     Dosage: 2 TAB, QD (1 TAB AT LUNCH TIME AND 1 TAB AT DINNER)
     Route: 048
     Dates: start: 2009
  3. LEVEMIR [Suspect]
     Active Substance: INSULIN DETEMIR
     Dosage: 22 IU, QD (DOSE INCREASED TO 14 IU IN THE MORNING AND 8 IU IN THE EVENING)
     Route: 058
  4. EFFEXOR [Concomitant]
     Active Substance: VENLAFAXINE HYDROCHLORIDE
     Indication: DEMENTIA ALZHEIMER^S TYPE
     Dosage: 1 TAB, QD (1 TAB AT NIGHT)
     Route: 048
     Dates: start: 2010
  5. LEVEMIR [Suspect]
     Active Substance: INSULIN DETEMIR
     Indication: DIABETES MELLITUS
     Dosage: 12 IU
     Route: 058

REACTIONS (3)
  - Pneumonia [Recovered/Resolved]
  - Urinary tract infection [Recovered/Resolved]
  - Device failure [Unknown]
